FAERS Safety Report 7769031-8 (Version None)
Quarter: 2011Q3

REPORT INFORMATION
  Report Type: 
  Country: None (occurrence: None)
  Receive Date: 20110922
  Receipt Date: 20101105
  Transmission Date: 20111222
  Serious: No
  Sender: FDA-Public Use
  Company Number: US-ASTRAZENECA-2010SE52913

PATIENT
  Sex: Male

DRUGS (5)
  1. SEROQUEL XR [Suspect]
     Route: 048
  2. SEROQUEL XR [Suspect]
     Route: 048
  3. MIRAPEX [Concomitant]
  4. SEROQUEL XR [Suspect]
     Indication: NIGHTMARE
     Route: 048
  5. SEROQUEL XR [Suspect]
     Indication: INSOMNIA
     Route: 048

REACTIONS (2)
  - SOMNOLENCE [None]
  - FEELING ABNORMAL [None]
